FAERS Safety Report 6558696-4 (Version None)
Quarter: 2010Q1

REPORT INFORMATION
  Report Type: 
  Country: None (occurrence: None)
  Receive Date: 20100129
  Receipt Date: 20100118
  Transmission Date: 20100710
  Serious: Yes (Hospitalization)
  Sender: FDA-Public Use
  Company Number: FR-PFIZER INC-2010006282

PATIENT
  Age: 91 Year
  Sex: Male

DRUGS (10)
  1. ALDACTONE [Suspect]
     Dosage: 25 MG, 1X/DAY
     Route: 048
     Dates: end: 20090526
  2. PREVISCAN [Suspect]
     Dosage: 10 MG, 1X/DAY
     Route: 048
     Dates: end: 20090526
  3. TRIATEC [Concomitant]
     Dosage: 1.25 MG,
     Route: 048
  4. FUROSEMIDE [Concomitant]
     Dosage: 40 MG, 1X/DAY
     Route: 048
     Dates: end: 20090527
  5. FUROSEMIDE [Concomitant]
     Dosage: 20 MG, PER DAY
     Route: 048
     Dates: start: 20090528
  6. MODOPAR [Concomitant]
     Indication: EXTRAPYRAMIDAL DISORDER
     Dosage: 1 DF, 3X/DAY
     Route: 048
  7. XATRAL [Concomitant]
     Indication: BENIGN PROSTATIC HYPERPLASIA
     Dosage: 10 MG, 1X/DAY
     Route: 048
  8. EFFERALGAN [Concomitant]
     Dosage: 1 G, 3X/DAY
     Route: 048
  9. TARDYFERON [Concomitant]
     Indication: ANAEMIA
     Dosage: 80 MG, 1X/DAY
     Route: 048
     Dates: start: 20080101
  10. NEXIUM [Concomitant]
     Dosage: 40 MG, 1X/DAY
     Route: 048

REACTIONS (4)
  - CONTRAINDICATION TO MEDICAL TREATMENT [None]
  - INTERNATIONAL NORMALISED RATIO INCREASED [None]
  - MELAENA [None]
  - OVERDOSE [None]
